FAERS Safety Report 4749264-5 (Version None)
Quarter: 2005Q3

REPORT INFORMATION
  Report Type: 
  Country: None (occurrence: None)
  Receive Date: 20050817
  Receipt Date: 20050809
  Transmission Date: 20060218
  Serious: Yes (Hospitalization)
  Sender: FDA-Public Use
  Company Number: 2005FR-00225

PATIENT
  Age: 49 Year
  Sex: Male

DRUGS (1)
  1. GLUCOPHAGE [Suspect]
     Dosage: 56 TABLETS

REACTIONS (3)
  - DIALYSIS [None]
  - OVERDOSE [None]
  - RENAL FAILURE [None]
